FAERS Safety Report 9301741 (Version 1)
Quarter: 2013Q2

REPORT INFORMATION
  Report Type: Spontaneous
  Country: US (occurrence: US)
  Receive Date: 20130521
  Receipt Date: 20130521
  Transmission Date: 20140414
  Serious: Yes (Other)
  Sender: FDA-Public Use
  Company Number: US-NICOBRDEVP-2013-08375

PATIENT
  Age: 52 Year
  Sex: Male
  Weight: 84 kg

DRUGS (3)
  1. CIPROFLOXACIN HYDROCHLORIDE (WATSON LABORATORIES) [Suspect]
     Indication: COLITIS
     Dosage: 500 MG, BID
     Route: 048
  2. METRONIDAZOLE (WATSON LABORATORIES) [Suspect]
     Indication: COLITIS
     Dosage: 250 MG, QID
     Route: 048
  3. HUMALOG [Concomitant]
     Indication: DIABETES MELLITUS
     Dosage: UNK
     Route: 058

REACTIONS (1)
  - Hypoglycaemia [Recovered/Resolved]
